FAERS Safety Report 4916795-4 (Version None)
Quarter: 2006Q1

REPORT INFORMATION
  Report Type: 
  Country: None (occurrence: None)
  Receive Date: 20060220
  Receipt Date: 20060207
  Transmission Date: 20060701
  Serious: Yes (Other)
  Sender: FDA-Public Use
  Company Number: AU-ROCHE-435733

PATIENT
  Age: 16 Year
  Sex: Female

DRUGS (1)
  1. ROACCUTANE [Suspect]
     Indication: ACNE
     Route: 065
     Dates: start: 20060117

REACTIONS (1)
  - NEPHROLITHIASIS [None]
